FAERS Safety Report 9445781 (Version 1)
Quarter: 2013Q3

REPORT INFORMATION
  Report Type: Spontaneous
  Country: US (occurrence: US)
  Receive Date: 20130807
  Receipt Date: 20130807
  Transmission Date: 20140515
  Serious: Yes (Other)
  Sender: FDA-Public Use
  Company Number: US-FRI-1000047520

PATIENT
  Age: 63 Year
  Sex: Female

DRUGS (2)
  1. ARMOUR THYROID [Suspect]
     Indication: HYPOTHYROIDISM
     Dosage: 60 MG
     Route: 048
     Dates: start: 20130715, end: 20130725
  2. XANAX [Concomitant]
     Indication: ANXIETY

REACTIONS (2)
  - Palpitations [Recovered/Resolved]
  - Dyspnoea [Recovered/Resolved]
